FAERS Safety Report 20895095 (Version 2)
Quarter: 2022Q3

REPORT INFORMATION
  Report Type: Report from Study
  Country: CN (occurrence: CN)
  Receive Date: 20220531
  Receipt Date: 20220819
  Transmission Date: 20221027
  Serious: Yes (Other)
  Sender: FDA-Public Use
  Company Number: CN-TAKEDA-2022TUS036049

PATIENT
  Age: 24 Year
  Sex: Male
  Weight: 50 kg

DRUGS (3)
  1. VEDOLIZUMAB [Suspect]
     Active Substance: VEDOLIZUMAB
     Indication: Crohn^s disease
     Dosage: 300 MILLIGRAM
     Route: 042
     Dates: start: 20220112, end: 20220727
  2. METHYLPREDNISOLONE [Suspect]
     Active Substance: METHYLPREDNISOLONE
     Indication: Inflammatory bowel disease
     Dosage: 32 MILLIGRAM, QD
     Route: 048
     Dates: start: 20220322, end: 20220617
  3. ENTERAL NUTRITIONAL POWDER(TP) [Concomitant]
     Indication: Supplementation therapy
     Dosage: 55.8 GRAM, QD
     Route: 048
     Dates: start: 20220111

REACTIONS (2)
  - Clostridium difficile colitis [Not Recovered/Not Resolved]
  - Acne [Recovering/Resolving]

NARRATIVE: CASE EVENT DATE: 20220127
